FAERS Safety Report 25806612 (Version 2)
Quarter: 2025Q3

REPORT INFORMATION
  Report Type: Report from Study
  Country: CA (occurrence: CA)
  Receive Date: 20250916
  Receipt Date: 20250923
  Transmission Date: 20251021
  Serious: Yes (Other)
  Sender: SANOFI AVENTIS
  Company Number: CA-SA-2025SA209932

PATIENT
  Age: 67 Year
  Sex: Male

DRUGS (21)
  1. ISATUXIMAB [Suspect]
     Active Substance: ISATUXIMAB
     Indication: Plasma cell myeloma
     Dosage: 790 MG, QOW
     Route: 042
     Dates: start: 20250626
  2. SENNA LAXATIVE [Concomitant]
     Active Substance: SENNOSIDES
  3. SYNJARDY [Concomitant]
     Active Substance: EMPAGLIFLOZIN\METFORMIN HYDROCHLORIDE
  4. PANTOPRAZOLE SODIUM [Concomitant]
     Active Substance: PANTOPRAZOLE SODIUM
  5. MAGNESIUM [Concomitant]
     Active Substance: MAGNESIUM
  6. CALCIUM [Concomitant]
     Active Substance: CALCIUM
  7. SPIRONOLACTONE [Concomitant]
     Active Substance: SPIRONOLACTONE
  8. METOPROLOL [Concomitant]
     Active Substance: METOPROLOL
  9. TARO APIXABAN [Concomitant]
  10. FERROUS GLUCONATE [Concomitant]
     Active Substance: FERROUS GLUCONATE
  11. MYLAN VALACYCLOVIR [Concomitant]
  12. Apo Prochlorperazine [Concomitant]
  13. Apo Prochlorperazine [Concomitant]
  14. METOCLOPRAMIDE [Concomitant]
     Active Substance: METOCLOPRAMIDE
  15. METOCLOPRAMIDE [Concomitant]
     Active Substance: METOCLOPRAMIDE
  16. ONDANSETRON [Concomitant]
     Active Substance: ONDANSETRON
  17. ONDANSETRON [Concomitant]
     Active Substance: ONDANSETRON
  18. CANNABIS SATIVA SUBSP. INDICA TOP [Concomitant]
     Active Substance: CANNABIS SATIVA SUBSP. INDICA TOP
  19. CANNABIS SATIVA SUBSP. INDICA TOP [Concomitant]
     Active Substance: CANNABIS SATIVA SUBSP. INDICA TOP
  20. JAMP K8 [Concomitant]
  21. Jamp spironolacton [Concomitant]

REACTIONS (4)
  - Delirium [Recovered/Resolved]
  - Acute kidney injury [Recovered/Resolved]
  - Diarrhoea [Recovered/Resolved]
  - Influenza [Recovered/Resolved]

NARRATIVE: CASE EVENT DATE: 20250712
